FAERS Safety Report 16284788 (Version 2)
Quarter: 2020Q1

REPORT INFORMATION
  Report Type: Spontaneous
  Country: US (occurrence: US)
  Receive Date: 20190508
  Receipt Date: 20200326
  Transmission Date: 20200409
  Serious: Yes (Other)
  Sender: FDA-Public Use
  Company Number: US-ABBVIE-19P-163-2771767-00

PATIENT
  Sex: Female

DRUGS (1)
  1. CREON [Suspect]
     Active Substance: PANCRELIPASE AMYLASE\PANCRELIPASE LIPASE\PANCRELIPASE PROTEASE
     Indication: PRODUCT USED FOR UNKNOWN INDICATION
     Dosage: 6 WITH REGULAR MEALS,7 WITH HOLIDAY MEAL,2-3 WITH A SNACK,1 WITH NO SUGAR ADDED FUDGESICLE
     Route: 048

REACTIONS (6)
  - Pancreatitis [Unknown]
  - Enzyme level abnormal [Unknown]
  - Depressed mood [Unknown]
  - Pancreatic atrophy [Unknown]
  - Pancreatic disorder [Unknown]
  - Pain [Unknown]

NARRATIVE: CASE EVENT DATE: 2020
